FAERS Safety Report 13195700 (Version 1)
Quarter: 2017Q1

REPORT INFORMATION
  Report Type: Spontaneous
  Country: US (occurrence: US)
  Receive Date: 20170207
  Receipt Date: 20170207
  Transmission Date: 20170428
  Serious: Yes (Disabling, Other)
  Sender: FDA-Public Use
  Company Number: None

PATIENT
  Age: 47 Year
  Sex: Female
  Weight: 65.25 kg

DRUGS (1)
  1. ALDARA [Suspect]
     Active Substance: IMIQUIMOD
     Indication: SKIN CANCER

REACTIONS (7)
  - Migraine [None]
  - Nausea [None]
  - Autoimmune disorder [None]
  - Application site ulcer [None]
  - Malaise [None]
  - Pain [None]
  - Eye swelling [None]

NARRATIVE: CASE EVENT DATE: 20080326
